FAERS Safety Report 10061049 (Version 2)
Quarter: 2014Q2

REPORT INFORMATION
  Report Type: Spontaneous
  Country: US (occurrence: US)
  Receive Date: 20140405
  Receipt Date: 20140405
  Transmission Date: 20141212
  Serious: Yes (Disabling)
  Sender: FDA-Public Use
  Company Number: US-GE HEALTHCARE MEDICAL DIAGNOSTICS-OSCN-PR-0907S-0362

PATIENT
  Age: 59 Year
  Sex: Female

DRUGS (4)
  1. MAGNEVIST [Suspect]
     Indication: RENAL FAILURE
     Route: 042
     Dates: start: 20030110, end: 20030110
  2. MAGNEVIST [Suspect]
     Indication: PRODUCT USED FOR UNKNOWN INDICATION
     Route: 042
     Dates: start: 20040403, end: 20040403
  3. MAGNEVIST [Suspect]
     Indication: PRODUCT USED FOR UNKNOWN INDICATION
     Route: 042
     Dates: start: 20040506, end: 20040506
  4. MAGNEVIST [Suspect]
     Route: 042
     Dates: start: 20050915, end: 20050915

REACTIONS (1)
  - Nephrogenic systemic fibrosis [Not Recovered/Not Resolved]
